FAERS Safety Report 6877182-5 (Version None)
Quarter: 2010Q3

REPORT INFORMATION
  Report Type: 
  Country: None (occurrence: None)
  Receive Date: 20100727
  Receipt Date: 20100727
  Transmission Date: 20110219
  Serious: Yes (Other)
  Sender: FDA-Public Use
  Company Number: None

PATIENT
  Age: 70 Year
  Sex: Female
  Weight: 72.5755 kg

DRUGS (2)
  1. LIPITOR [Suspect]
     Indication: BLOOD CHOLESTEROL INCREASED
     Dosage: 1 TABLET DAILY PO
     Route: 048
     Dates: start: 20100708, end: 20100719
  2. LIPITOR [Suspect]
     Indication: BLOOD TRIGLYCERIDES
     Dosage: 1 TABLET DAILY PO
     Route: 048
     Dates: start: 20100708, end: 20100719

REACTIONS (6)
  - BLOOD PRESSURE INCREASED [None]
  - CONSTIPATION [None]
  - DRY MOUTH [None]
  - HEADACHE [None]
  - MUSCULAR WEAKNESS [None]
  - PAIN [None]
